FAERS Safety Report 5903658-0 (Version None)
Quarter: 2008Q3

REPORT INFORMATION
  Report Type: 
  Country: None (occurrence: None)
  Receive Date: 20080930
  Receipt Date: 20080916
  Transmission Date: 20090109
  Serious: Yes (Other)
  Sender: FDA-Public Use
  Company Number: BR-ELI_LILLY_AND_COMPANY-BR200809003730

PATIENT
  Age: 48 Year
  Sex: Female
  Weight: 94 kg

DRUGS (1)
  1. BYETTA [Suspect]
     Indication: TYPE 2 DIABETES MELLITUS
     Dosage: 5 UG, 2/D
     Route: 058
     Dates: start: 20080801

REACTIONS (2)
  - LIVER DISORDER [None]
  - POSTMENOPAUSAL HAEMORRHAGE [None]
